FAERS Safety Report 7298965-6 (Version None)
Quarter: 2011Q1

REPORT INFORMATION
  Report Type: 
  Country: None (occurrence: None)
  Receive Date: 20110217
  Receipt Date: 20110213
  Transmission Date: 20110831
  Serious: Yes (Hospitalization)
  Sender: FDA-Public Use
  Company Number: US-ABBOTT-10P-163-0691677-00

PATIENT
  Age: 62 Year
  Sex: Female

DRUGS (7)
  1. THYROID MEDICATION [Concomitant]
     Indication: THYROID DISORDER
  2. BLOOD THINNER [Concomitant]
     Indication: ANTICOAGULANT THERAPY
  3. HUMIRA [Suspect]
     Indication: PSORIASIS
     Dates: start: 20101001, end: 20101210
  4. BP MEDICINE [Concomitant]
     Indication: HYPERTENSION
  5. COPD MEDICINES [Concomitant]
     Indication: CHRONIC OBSTRUCTIVE PULMONARY DISEASE
  6. MAGNESIUM SULFATE [Concomitant]
     Indication: MINERAL SUPPLEMENTATION
  7. ANTIDEPRESSANT [Concomitant]
     Indication: DEPRESSION

REACTIONS (3)
  - RESPIRATORY FAILURE [None]
  - MEMORY IMPAIRMENT [None]
  - PSORIASIS [None]
